FAERS Safety Report 13521957 (Version 7)
Quarter: 2018Q3

REPORT INFORMATION
  Report Type: Report from Study
  Country: CO (occurrence: CO)
  Receive Date: 20170508
  Receipt Date: 20180824
  Transmission Date: 20181010
  Serious: Yes (Death, Hospitalization, Other)
  Sender: FDA-Public Use
  Company Number: PHHY2017CO063886

PATIENT
  Age: 50 Year
  Sex: Male
  Weight: 82 kg

DRUGS (5)
  1. TRAMADOL. [Concomitant]
     Active Substance: TRAMADOL
     Indication: PAIN
     Dosage: 8 TO 10 DROPS ACCORDING TO PAIN (FROM 10 TO 12 AT NIGHT)
     Route: 065
  2. COSENTYX [Suspect]
     Active Substance: SECUKINUMAB
     Indication: ANKYLOSING SPONDYLITIS
     Dosage: 2 DF, QMO
     Route: 058
     Dates: start: 20161222
  3. COSENTYX [Suspect]
     Active Substance: SECUKINUMAB
     Indication: PSORIATIC ARTHROPATHY
     Dosage: 300 MG, QMO
     Route: 058
     Dates: start: 20180510
  4. ACETAMINOPHEN. [Concomitant]
     Active Substance: ACETAMINOPHEN
     Indication: PAIN
     Dosage: 2 TABLETS ACCORDING TO PAIN
     Route: 065
  5. COSENTYX [Suspect]
     Active Substance: SECUKINUMAB
     Indication: PSORIASIS
     Dosage: 150 MG, QMO
     Route: 058
     Dates: start: 20170418

REACTIONS (17)
  - Liver transplant rejection [Not Recovered/Not Resolved]
  - Haemorrhage [Unknown]
  - Pruritus allergic [Recovering/Resolving]
  - Inappropriate schedule of drug administration [Unknown]
  - Cholestasis [Unknown]
  - Hepatic cirrhosis [Unknown]
  - Sleep apnoea syndrome [Unknown]
  - Blood bilirubin increased [Unknown]
  - Myocardial infarction [Fatal]
  - Hepatic infection [Unknown]
  - Thrombosis [Unknown]
  - Hepatitis [Unknown]
  - Heart rate decreased [Fatal]
  - Transaminases increased [Unknown]
  - Bile duct stone [Recovered/Resolved]
  - Device related infection [Unknown]
  - Spinal pain [Unknown]

NARRATIVE: CASE EVENT DATE: 201702
